FAERS Safety Report 15609152 (Version 2)
Quarter: 2018Q4

REPORT INFORMATION
  Report Type: Report from Study
  Country: US (occurrence: US)
  Receive Date: 20181112
  Receipt Date: 20181116
  Transmission Date: 20190205
  Serious: Yes (Other)
  Sender: FDA-Public Use
  Company Number: US-ALLERGAN-1852841US

PATIENT
  Age: 75 Year
  Sex: Female

DRUGS (1)
  1. CARBOXYMETHYLCELLULOSE SODIUM GLYCERIN [Suspect]
     Active Substance: CARBOXYMETHYLCELLULOSE SODIUM\GLYCERIN
     Indication: PRODUCT USED FOR UNKNOWN INDICATION
     Route: 047

REACTIONS (2)
  - Superficial injury of eye [Unknown]
  - Cataract operation [Unknown]
